FAERS Safety Report 8452649-7 (Version None)
Quarter: 2012Q2

REPORT INFORMATION
  Report Type: 
  Country: None (occurrence: None)
  Receive Date: 20120620
  Receipt Date: 20120613
  Transmission Date: 20120825
  Serious: Yes (Hospitalization, Other)
  Sender: FDA-Public Use
  Company Number: PHEH2012US010655

PATIENT
  Sex: Female

DRUGS (3)
  1. BACLOFEN [Concomitant]
  2. GILENYA [Suspect]
     Indication: MULTIPLE SCLEROSIS
     Dosage: 0.5 MG, QD
     Route: 048
     Dates: start: 20110413, end: 20120521
  3. VALIUM [Concomitant]

REACTIONS (10)
  - ABASIA [None]
  - PAIN IN EXTREMITY [None]
  - DYSSTASIA [None]
  - MOVEMENT DISORDER [None]
  - STAPHYLOCOCCAL INFECTION [None]
  - FURUNCLE [None]
  - FEELING ABNORMAL [None]
  - WHITE BLOOD CELL COUNT DECREASED [None]
  - HYPOAESTHESIA [None]
  - NASOPHARYNGITIS [None]
